FAERS Safety Report 19494633 (Version 2)
Quarter: 2021Q3

REPORT INFORMATION
  Report Type: Report from Study
  Country: US (occurrence: US)
  Receive Date: 20210705
  Receipt Date: 20210903
  Transmission Date: 20211014
  Serious: Yes (Other)
  Sender: FDA-Public Use
  Company Number: NVSC2021US143903

PATIENT
  Sex: Female

DRUGS (1)
  1. COSENTYX [Suspect]
     Active Substance: SECUKINUMAB
     Indication: PSORIATIC ARTHROPATHY
     Dosage: 150 MG, QMO
     Route: 058
     Dates: start: 20210531

REACTIONS (5)
  - Rheumatoid arthritis [Unknown]
  - Psoriasis [Unknown]
  - Food poisoning [Unknown]
  - Pain in jaw [Unknown]
  - Arthralgia [Unknown]
